FAERS Safety Report 19605910 (Version 1)
Quarter: 2021Q3

REPORT INFORMATION
  Report Type: Spontaneous
  Country: US (occurrence: US)
  Receive Date: 20210723
  Receipt Date: 20210723
  Transmission Date: 20211014
  Serious: Yes (Hospitalization)
  Sender: FDA-Public Use
  Company Number: US-FRESENIUS KABI-FK202107360

PATIENT
  Age: 24 Year
  Sex: Male
  Weight: 37.3 kg

DRUGS (6)
  1. OMEGAVEN [Suspect]
     Active Substance: FISH OIL
     Route: 042
     Dates: start: 202009, end: 202102
  2. OMEGAVEN [Suspect]
     Active Substance: FISH OIL
     Indication: PARENTERAL NUTRITION
     Dosage: UNKNOWN
     Route: 042
     Dates: start: 202001
  3. OMEGAVEN [Suspect]
     Active Substance: FISH OIL
     Route: 042
     Dates: start: 202102
  4. OMEGAVEN [Suspect]
     Active Substance: FISH OIL
     Route: 042
     Dates: end: 202005
  5. OMEGAVEN [Suspect]
     Active Substance: FISH OIL
     Route: 042
     Dates: start: 202005, end: 202007
  6. OMEGAVEN [Suspect]
     Active Substance: FISH OIL
     Route: 042
     Dates: start: 202007, end: 202009

REACTIONS (5)
  - Liver function test increased [Recovered/Resolved]
  - Psoas abscess [Recovered/Resolved]
  - No adverse event [None]
  - Vascular device infection [Recovered/Resolved]
  - Intentional product use issue [Not Recovered/Not Resolved]

NARRATIVE: CASE EVENT DATE: 202001
